FAERS Safety Report 8310168-2 (Version None)
Quarter: 2012Q2

REPORT INFORMATION
  Report Type: 
  Country: None (occurrence: None)
  Receive Date: 20120425
  Receipt Date: 20120420
  Transmission Date: 20120825
  Serious: No
  Sender: FDA-Public Use
  Company Number: US-BAYER-2012-039455

PATIENT
  Sex: Female

DRUGS (4)
  1. HYDROCHLOROTHIAZIDE [Concomitant]
     Dosage: 12.5 MG
  2. TOPROL-XL [Concomitant]
     Dosage: 50 MG
  3. INTERFERON BETA-1B [Suspect]
     Dosage: 0.25 MG, QOD
     Route: 058
  4. ASPIRIN [Concomitant]
     Dosage: 81 MG, EC

REACTIONS (1)
  - BLADDER DISORDER [None]
